FAERS Safety Report 21874295 (Version 1)
Quarter: 2023Q1

REPORT INFORMATION
  Report Type: Spontaneous
  Country: ES (occurrence: ES)
  Receive Date: 20230117
  Receipt Date: 20230117
  Transmission Date: 20230417
  Serious: Yes (Hospitalization)
  Sender: FDA-Public Use
  Company Number: ES-PHARMAAND-2023PHR00004

PATIENT
  Age: 38 Year
  Sex: Female

DRUGS (1)
  1. PEGASYS [Suspect]
     Active Substance: PEGINTERFERON ALFA-2A
     Indication: Myeloproliferative neoplasm
     Dosage: 30 MICROGRAM EVERY 7 DAY(S) 30 MCG/WEEKLY
     Route: 058
     Dates: start: 202208, end: 20221201

REACTIONS (4)
  - Cholelithiasis [Recovering/Resolving]
  - Cholestasis [Recovering/Resolving]
  - Jaundice [Recovering/Resolving]
  - Off label use [Recovered/Resolved]

NARRATIVE: CASE EVENT DATE: 20221128
